FAERS Safety Report 6945249-9 (Version None)
Quarter: 2010Q3

REPORT INFORMATION
  Report Type: 
  Country: None (occurrence: None)
  Receive Date: 20100827
  Receipt Date: 20100712
  Transmission Date: 20110219
  Serious: No
  Sender: FDA-Public Use
  Company Number: US-KINGPHARMUSA00001-K201000871

PATIENT
  Age: 69 Year
  Sex: Female
  Weight: 68.027 kg

DRUGS (3)
  1. FLECTOR [Suspect]
     Indication: BACK PAIN
     Dosage: 1 PATCH, QD FOR 12 HOURS
     Route: 061
     Dates: start: 20100301, end: 20100711
  2. FLECTOR [Suspect]
     Indication: MUSCULOSKELETAL CHEST PAIN
  3. LORTAB [Concomitant]
     Indication: PAIN
     Dosage: 5 MG, PRN

REACTIONS (11)
  - DECREASED APPETITE [None]
  - DRUG INEFFECTIVE [None]
  - DYSSTASIA [None]
  - GROIN PAIN [None]
  - HEADACHE [None]
  - HYPERHIDROSIS [None]
  - MUSCULOSKELETAL CHEST PAIN [None]
  - NAUSEA [None]
  - PAIN IN EXTREMITY [None]
  - PAINFUL RESPIRATION [None]
  - PYREXIA [None]
